FAERS Safety Report 11713395 (Version 8)
Quarter: 2016Q4

REPORT INFORMATION
  Report Type: Report from Study
  Country: None (occurrence: KR)
  Receive Date: 20151109
  Receipt Date: 20161024
  Transmission Date: 20170206
  Serious: Yes (Hospitalization, Other)
  Sender: FDA-Public Use
  Company Number: KR-ABBVIE-15K-090-1485643-00

PATIENT
  Age: 16 Year
  Sex: Male
  Weight: 41 kg

DRUGS (14)
  1. HUMIRA [Suspect]
     Active Substance: ADALIMUMAB
     Route: 058
     Dates: start: 20151023, end: 20151023
  2. HUMIRA [Suspect]
     Active Substance: ADALIMUMAB
     Route: 058
     Dates: start: 20151215
  3. METRONIDAZOLE. [Concomitant]
     Active Substance: METRONIDAZOLE
     Indication: CROHN^S DISEASE
     Route: 042
     Dates: start: 20151016, end: 20151118
  4. METRONIDAZOLE. [Concomitant]
     Active Substance: METRONIDAZOLE
     Indication: POSTOPERATIVE WOUND INFECTION
     Route: 042
     Dates: start: 20151209, end: 20151210
  5. MEROPENEM. [Concomitant]
     Active Substance: MEROPENEM
     Indication: POSTOPERATIVE WOUND INFECTION
     Route: 042
     Dates: start: 20151027, end: 20151114
  6. TAZOPERAN [Concomitant]
     Indication: POSTOPERATIVE WOUND INFECTION
     Route: 042
     Dates: start: 20151024, end: 20151027
  7. DEMETHAXONE [Concomitant]
     Indication: CROHN^S DISEASE
     Route: 042
     Dates: start: 20151109, end: 20151116
  8. AMPICILLIN+SULBACTAM [Concomitant]
     Active Substance: AMPICILLIN SODIUM\SULBACTAM SODIUM
     Indication: INFECTION PROPHYLAXIS
     Route: 042
     Dates: start: 20151211
  9. HUMIRA [Suspect]
     Active Substance: ADALIMUMAB
     Route: 058
     Dates: start: 20151007, end: 20151007
  10. HUMIRA [Suspect]
     Active Substance: ADALIMUMAB
     Indication: PRODUCT USED FOR UNKNOWN INDICATION
     Route: 058
     Dates: start: 20150924, end: 20150924
  11. PREDNISOLONE. [Concomitant]
     Active Substance: PREDNISOLONE
     Indication: CROHN^S DISEASE
     Route: 048
     Dates: start: 20151117, end: 20151202
  12. TEICOPLANIN [Concomitant]
     Active Substance: TEICOPLANIN
     Indication: POSTOPERATIVE WOUND INFECTION
     Route: 042
     Dates: start: 20151027, end: 20151114
  13. CEFTRIAXONE. [Concomitant]
     Active Substance: CEFTRIAXONE
     Indication: POSTOPERATIVE WOUND INFECTION
     Route: 042
     Dates: start: 20151115, end: 20151201
  14. UBACILLIN [Concomitant]
     Indication: POSTOPERATIVE WOUND INFECTION
     Route: 042
     Dates: start: 20151115, end: 20151125

REACTIONS (13)
  - Pyrexia [Recovered/Resolved]
  - C-reactive protein increased [Recovered/Resolved]
  - Pyrexia [Recovered/Resolved]
  - Gastrointestinal inflammation [Recovered/Resolved]
  - Red blood cell sedimentation rate increased [Recovered/Resolved]
  - Intestinal stenosis [Recovered/Resolved]
  - Gastrointestinal necrosis [Recovered/Resolved]
  - Colonic haematoma [Recovered/Resolved]
  - Pain [Recovered/Resolved]
  - Anastomotic complication [Recovered/Resolved]
  - Haematochezia [Recovered/Resolved]
  - Peritonitis [Recovered/Resolved]
  - Abdominal pain [Recovered/Resolved]

NARRATIVE: CASE EVENT DATE: 20151013
